FAERS Safety Report 8062025-7 (Version None)
Quarter: 2012Q1

REPORT INFORMATION
  Report Type: 
  Country: None (occurrence: None)
  Receive Date: 20120123
  Receipt Date: 20111005
  Transmission Date: 20120608
  Serious: Yes (Hospitalization)
  Sender: FDA-Public Use
  Company Number: CA-JNJFOC-20120105595

PATIENT
  Sex: Male

DRUGS (8)
  1. WELLBUTRIN [Concomitant]
     Route: 065
  2. GRAVOL TAB [Concomitant]
     Route: 065
  3. CIPROFLOXACIN [Concomitant]
     Route: 065
  4. FLAGYL [Concomitant]
     Route: 065
  5. REMICADE [Suspect]
     Indication: CROHN'S DISEASE
     Route: 042
     Dates: start: 20091006
  6. PRILOSEC [Concomitant]
     Route: 065
  7. SENOKOT [Concomitant]
     Route: 065
  8. CELEXA [Concomitant]
     Route: 065

REACTIONS (1)
  - ILEOSTOMY [None]
